FAERS Safety Report 11308501 (Version 3)
Quarter: 2015Q3

REPORT INFORMATION
  Report Type: Report from Study
  Country: IL (occurrence: IL)
  Receive Date: 20150724
  Receipt Date: 20150819
  Transmission Date: 20151125
  Serious: Yes (Hospitalization)
  Sender: FDA-Public Use
  Company Number: IL-BIOGENIDEC-2015BI102009

PATIENT
  Age: 51 Year
  Sex: Female

DRUGS (10)
  1. FAMPYRA [Concomitant]
     Active Substance: DALFAMPRIDINE
  2. VESICARE [Concomitant]
     Active Substance: SOLIFENACIN SUCCINATE
  3. VITAMIN D [Concomitant]
     Active Substance: CHOLECALCIFEROL
  4. OPTALGIN [Concomitant]
     Active Substance: METAMIZOLE
     Indication: MIGRAINE
  5. TYSABRI [Suspect]
     Active Substance: NATALIZUMAB
     Indication: RELAPSING-REMITTING MULTIPLE SCLEROSIS
     Route: 042
     Dates: start: 20120726, end: 20150615
  6. RELERT [Concomitant]
     Indication: MIGRAINE
  7. PROVIGIL [Concomitant]
     Active Substance: MODAFINIL
  8. TOPAMAX [Concomitant]
     Active Substance: TOPIRAMATE
     Indication: MIGRAINE
  9. SLOW K [Concomitant]
     Active Substance: POTASSIUM CHLORIDE
  10. FAMOTIDINE. [Concomitant]
     Active Substance: FAMOTIDINE

REACTIONS (5)
  - Multiple sclerosis [Unknown]
  - Lymphopenia [Unknown]
  - Multiple sclerosis relapse [Not Recovered/Not Resolved]
  - Weight decreased [Recovered/Resolved]
  - Pyrexia [Not Recovered/Not Resolved]

NARRATIVE: CASE EVENT DATE: 2014
